FAERS Safety Report 11597026 (Version 1)
Quarter: 2015Q4

REPORT INFORMATION
  Report Type: Spontaneous
  Country: TW (occurrence: TW)
  Receive Date: 20151006
  Receipt Date: 20151006
  Transmission Date: 20160304
  Serious: Yes (Other)
  Sender: FDA-Public Use
  Company Number: TW-ROCHE-1641185

PATIENT
  Age: 48 Year
  Sex: Female

DRUGS (3)
  1. KADCYLA [Suspect]
     Active Substance: ADO-TRASTUZUMAB EMTANSINE
     Indication: BREAST CANCER METASTATIC
     Route: 065
     Dates: start: 20140709, end: 2014
  2. PERJETA [Suspect]
     Active Substance: PERTUZUMAB
     Indication: BREAST CANCER METASTATIC
     Route: 065
     Dates: start: 20140709, end: 20150212
  3. KADCYLA [Suspect]
     Active Substance: ADO-TRASTUZUMAB EMTANSINE
     Route: 065
     Dates: start: 20141202, end: 20150105

REACTIONS (5)
  - Hepatic failure [Unknown]
  - Off label use [Unknown]
  - Hepatotoxicity [Unknown]
  - Bone marrow failure [Unknown]
  - Epistaxis [Unknown]

NARRATIVE: CASE EVENT DATE: 20140709
